FAERS Safety Report 7068241-5 (Version None)
Quarter: 2010Q4

REPORT INFORMATION
  Report Type: 
  Country: None (occurrence: None)
  Receive Date: 20101028
  Receipt Date: 20101019
  Transmission Date: 20110411
  Serious: Yes (Life-Threatening, Hospitalization, Other)
  Sender: FDA-Public Use
  Company Number: CA-JNJFOC-20100807725

PATIENT
  Sex: Male
  Weight: 138.6 kg

DRUGS (18)
  1. TAPENTADOL [Suspect]
     Route: 048
  2. TAPENTADOL [Suspect]
     Indication: DIABETIC NEUROPATHY
     Route: 048
  3. TAPENTADOL [Suspect]
     Route: 048
  4. TAPENTADOL [Suspect]
     Indication: DIABETIC NEUROPATHY
     Route: 048
  5. FERROUS GLUCONATE [Concomitant]
     Indication: HAEMOGLOBIN DECREASED
     Dosage: 1 DAILY
     Route: 048
  6. FERROUS GLUCONATE [Concomitant]
     Indication: BLOOD IRON DECREASED
     Dosage: 1 DAILY
     Route: 048
  7. PERCOCET [Concomitant]
     Indication: DIABETIC NEUROPATHY
     Dosage: 4 IN 1 DAY
     Route: 048
  8. FUROSEMIDE [Concomitant]
     Indication: CARDIAC FAILURE CONGESTIVE
     Dosage: 2 PER DAY
     Route: 048
  9. COZAAR [Concomitant]
     Indication: HYPERTENSION
     Dosage: 1 PER DAY
     Route: 048
  10. LORAZEPAM [Concomitant]
     Indication: SLEEP APNOEA SYNDROME
     Dosage: 1 AT NIGHT
     Route: 048
  11. NORVASC [Concomitant]
     Indication: HYPERTENSION
     Dosage: 1 PER DAY
     Route: 048
  12. SPIROTONE [Concomitant]
     Indication: HYPERTENSION
     Dosage: 1 PER DAY
     Route: 048
  13. SINGULAIR [Concomitant]
     Indication: ASTHMA
     Dosage: 1 PER DAY
     Route: 048
  14. EPIPEN [Concomitant]
     Indication: ANAPHYLACTIC REACTION
     Route: 030
  15. AMPICILLIN [Concomitant]
     Indication: BRONCHITIS
     Dosage: 3 PER DAY
     Route: 048
  16. AMPICILLIN [Concomitant]
     Dosage: 3 PER DAY
     Route: 048
  17. ASPIRIN [Concomitant]
     Indication: CARDIOVASCULAR EVENT PROPHYLAXIS
     Dosage: DAILY
     Route: 048
  18. TRAMADOL HCL [Concomitant]
     Indication: DIABETIC NEUROPATHY
     Route: 048

REACTIONS (4)
  - ANXIETY [None]
  - CEREBROVASCULAR ACCIDENT [None]
  - HYPOGLYCAEMIA [None]
  - SUICIDAL IDEATION [None]
